FAERS Safety Report 24864657 (Version 1)
Quarter: 2025Q1

REPORT INFORMATION
  Report Type: Spontaneous
  Country: US (occurrence: US)
  Receive Date: 20250120
  Receipt Date: 20250120
  Transmission Date: 20250408
  Serious: No
  Sender: JOHNSON AND JOHNSON
  Company Number: US-KENVUE-20241206615

PATIENT
  Age: 81 Year
  Sex: Male

DRUGS (3)
  1. IMODIUM [Suspect]
     Active Substance: LOPERAMIDE HYDROCHLORIDE
     Indication: Diarrhoea
     Route: 065
     Dates: start: 202408
  2. OFEV [Concomitant]
     Active Substance: NINTEDANIB
     Indication: Emphysema
     Dosage: 300 MILLIGRAM, ONCE A DAY
     Dates: start: 202404
  3. OFEV [Concomitant]
     Active Substance: NINTEDANIB

REACTIONS (2)
  - Faeces hard [Recovered/Resolved]
  - Faeces discoloured [Recovered/Resolved]

NARRATIVE: CASE EVENT DATE: 20240801
